FAERS Safety Report 15255653 (Version 1)
Quarter: 2018Q3

REPORT INFORMATION
  Report Type: Spontaneous
  Country: US (occurrence: US)
  Receive Date: 20180808
  Receipt Date: 20180808
  Transmission Date: 20181010
  Serious: No
  Sender: FDA-Public Use
  Company Number: US-PFIZER INC-2018314269

PATIENT
  Age: 10 Year
  Sex: Female

DRUGS (1)
  1. GENOTROPIN [Suspect]
     Active Substance: SOMATROPIN
     Dosage: 1.2 MG (6 DAYS A WEEK)
     Dates: start: 20170907

REACTIONS (4)
  - Drug dose omission [Unknown]
  - Malaise [Unknown]
  - Epistaxis [Unknown]
  - Headache [Unknown]
